FAERS Safety Report 6867433-5 (Version None)
Quarter: 2010Q3

REPORT INFORMATION
  Report Type: 
  Country: None (occurrence: None)
  Receive Date: 20100722
  Receipt Date: 20100712
  Transmission Date: 20110219
  Serious: Yes (Hospitalization)
  Sender: FDA-Public Use
  Company Number: AU-PFIZER INC-2010087256

PATIENT
  Age: 25 Year
  Sex: Male

DRUGS (3)
  1. CHAMPIX [Suspect]
     Dosage: UNK
     Route: 048
     Dates: start: 20100526, end: 20100616
  2. RISPERIDONE [Suspect]
     Dosage: UNK
  3. CAL-SUP [Concomitant]
     Dosage: UNK

REACTIONS (5)
  - CONFUSIONAL STATE [None]
  - CONVULSION [None]
  - DISORIENTATION [None]
  - DYSARTHRIA [None]
  - DYSKINESIA [None]
